FAERS Safety Report 6127223-8 (Version None)
Quarter: 2009Q1

REPORT INFORMATION
  Report Type: 
  Country: None (occurrence: None)
  Receive Date: 20090320
  Receipt Date: 20090312
  Transmission Date: 20090719
  Serious: Yes (Hospitalization, Other)
  Sender: FDA-Public Use
  Company Number: US-ABBOTT-09P-163-0562038-00

PATIENT
  Sex: Female
  Weight: 80.812 kg

DRUGS (13)
  1. HUMIRA [Suspect]
     Indication: PSORIASIS
     Route: 058
     Dates: start: 20080101, end: 20080101
  2. HUMIRA [Suspect]
     Indication: PSORIATIC ARTHROPATHY
     Route: 058
     Dates: start: 20090118, end: 20090118
  3. HUMIRA [Suspect]
     Route: 058
     Dates: start: 20090201
  4. PROZAC [Concomitant]
     Indication: DEPRESSION
  5. NAPROSYN [Concomitant]
     Indication: ARTHRITIS
  6. RANITIDINE HCL [Concomitant]
     Indication: GASTROOESOPHAGEAL REFLUX DISEASE
  7. PRILOSEC [Concomitant]
     Indication: GASTROOESOPHAGEAL REFLUX DISEASE
  8. DARVOCET [Concomitant]
     Indication: PAIN
  9. SOMA [Concomitant]
     Indication: PAIN
  10. CLOBEX [Concomitant]
     Indication: PSORIASIS
  11. LOCOID LIPOCREME [Concomitant]
     Indication: PSORIASIS
  12. KENALOG [Concomitant]
     Indication: PSORIASIS
  13. VITAMINS [Concomitant]
     Indication: ROUTINE HEALTH MAINTENANCE

REACTIONS (7)
  - ABDOMINAL PAIN [None]
  - BODY TEMPERATURE [None]
  - CHOLELITHIASIS OBSTRUCTIVE [None]
  - HEPATIC LESION [None]
  - PSORIASIS [None]
  - SKIN CANCER [None]
  - VOMITING [None]
